FAERS Safety Report 15057641 (Version 1)
Quarter: 2018Q3

REPORT INFORMATION
  Report Type: Spontaneous
  Country: FR (occurrence: FR)
  Receive Date: 20180625
  Receipt Date: 20180625
  Transmission Date: 20181010
  Serious: Yes (Hospitalization)
  Sender: FDA-Public Use
  Company Number: FR-TEVA-2018-FR-912918

PATIENT
  Age: 66 Year
  Sex: Male

DRUGS (3)
  1. XATRAL LP 10 MG, COMPRIM? ? LIB?RATION PROLONG?E [Suspect]
     Active Substance: ALFUZOSIN
     Indication: BENIGN PROSTATIC HYPERPLASIA
     Dosage: 1 DOSAGE FORMS DAILY; EXTENDED RELEASE TABLET
     Route: 048
     Dates: end: 20180411
  2. KREDEX 25 MG, COMPRIM? S?CABLE [Suspect]
     Active Substance: CARVEDILOL
     Indication: MYOCARDIAL INFARCTION
     Dosage: 2 DOSAGE FORMS DAILY; SCORED TABLET
     Route: 048
     Dates: end: 20180411
  3. RAMIPRIL. [Suspect]
     Active Substance: RAMIPRIL
     Indication: MYOCARDIAL INFARCTION
     Dosage: 5 MILLIGRAM DAILY;
     Route: 048
     Dates: end: 20180411

REACTIONS (3)
  - Dehydration [Recovered/Resolved]
  - Hypotension [Recovered/Resolved]
  - Acute kidney injury [Recovered/Resolved]

NARRATIVE: CASE EVENT DATE: 20180413
